FAERS Safety Report 16333209 (Version 4)
Quarter: 2021Q2

REPORT INFORMATION
  Report Type: Spontaneous
  Country: US (occurrence: US)
  Receive Date: 20190520
  Receipt Date: 20210513
  Transmission Date: 20210716
  Serious: Yes (Other)
  Sender: FDA-Public Use
  Company Number: US-GILEAD-2019-0407968

PATIENT
  Age: 34 Year
  Sex: Male
  Weight: 54.42 kg

DRUGS (21)
  1. MEGESTROL [Concomitant]
     Active Substance: MEGESTROL
  2. LOSARTAN. [Concomitant]
     Active Substance: LOSARTAN
  3. VENTOLINE [SALBUTAMOL] [Concomitant]
     Active Substance: ALBUTEROL SULFATE
  4. FAMOTIDINE. [Concomitant]
     Active Substance: FAMOTIDINE
  5. ATRIPLA [Suspect]
     Active Substance: EFAVIRENZ\EMTRICITABINE\TENOFOVIR DISOPROXIL FUMARATE
     Indication: HIV INFECTION
     Dosage: UNK
     Route: 048
     Dates: start: 2010, end: 2018
  6. VITAMIN D [VITAMIN D NOS] [Concomitant]
     Active Substance: VITAMIN D NOS
  7. RANITIDINE. [Concomitant]
     Active Substance: RANITIDINE
  8. DESCOVY [Concomitant]
     Active Substance: EMTRICITABINE\TENOFOVIR ALAFENAMIDE FUMARATE
  9. LANTUS [Concomitant]
     Active Substance: INSULIN GLARGINE
  10. MONTELUKAST [Concomitant]
     Active Substance: MONTELUKAST SODIUM
  11. CREON [Concomitant]
     Active Substance: PANCRELIPASE AMYLASE\PANCRELIPASE LIPASE\PANCRELIPASE PROTEASE
  12. PRAVASTATIN. [Concomitant]
     Active Substance: PRAVASTATIN
  13. ATRIPLA [Suspect]
     Active Substance: EFAVIRENZ\EMTRICITABINE\TENOFOVIR DISOPROXIL FUMARATE
     Dosage: UNK
     Route: 048
     Dates: start: 201203, end: 201710
  14. FEXOFENADIN [Concomitant]
     Active Substance: FEXOFENADINE HYDROCHLORIDE
  15. CHLORPROMAZINE. [Concomitant]
     Active Substance: CHLORPROMAZINE
  16. ALBUTEROL [SALBUTAMOL] [Concomitant]
     Active Substance: ALBUTEROL
  17. LEVEMIR [Concomitant]
     Active Substance: INSULIN DETEMIR
  18. DULOXETINE. [Concomitant]
     Active Substance: DULOXETINE
  19. HYDRALAZINE [Concomitant]
     Active Substance: HYDRALAZINE HYDROCHLORIDE
  20. TIVICAY [Concomitant]
     Active Substance: DOLUTEGRAVIR SODIUM
  21. NOVOLOG [Concomitant]
     Active Substance: INSULIN ASPART

REACTIONS (13)
  - Economic problem [Not Recovered/Not Resolved]
  - Chronic kidney disease [Not Recovered/Not Resolved]
  - Anhedonia [Not Recovered/Not Resolved]
  - Fatigue [Unknown]
  - Osteoporosis [Unknown]
  - Renal injury [Unknown]
  - Emotional distress [Not Recovered/Not Resolved]
  - Anxiety [Not Recovered/Not Resolved]
  - Pain [Not Recovered/Not Resolved]
  - Bone density decreased [Not Recovered/Not Resolved]
  - Decreased appetite [Unknown]
  - Quality of life decreased [Unknown]
  - Depression [Not Recovered/Not Resolved]

NARRATIVE: CASE EVENT DATE: 201005
